FAERS Safety Report 9608536 (Version 2)
Quarter: 2013Q4

REPORT INFORMATION
  Report Type: Report from Study
  Country: JP (occurrence: JP)
  Receive Date: 20131009
  Receipt Date: 20131120
  Transmission Date: 20140711
  Serious: Yes (Hospitalization)
  Sender: FDA-Public Use
  Company Number: JP-JNJFOC-20131003030

PATIENT
  Age: 79 Year
  Sex: Male
  Weight: 71 kg

DRUGS (17)
  1. SIMPONI [Suspect]
     Indication: RHEUMATOID ARTHRITIS
     Route: 058
     Dates: start: 20130218, end: 20130218
  2. SIMPONI [Suspect]
     Indication: RHEUMATOID ARTHRITIS
     Route: 058
     Dates: start: 20130124, end: 20130124
  3. SIMPONI [Suspect]
     Indication: RHEUMATOID ARTHRITIS
     Route: 058
     Dates: start: 20121227, end: 20121227
  4. METHOTREXATE [Concomitant]
     Indication: RHEUMATOID ARTHRITIS
     Route: 048
  5. PREDONINE [Concomitant]
     Indication: RHEUMATOID ARTHRITIS
     Route: 048
     Dates: start: 20130718
  6. PREDONINE [Concomitant]
     Indication: RHEUMATOID ARTHRITIS
     Route: 048
     Dates: start: 20130322, end: 20130717
  7. PREDONINE [Concomitant]
     Indication: RHEUMATOID ARTHRITIS
     Route: 048
     Dates: start: 20130228, end: 20130321
  8. PREDONINE [Concomitant]
     Indication: RHEUMATOID ARTHRITIS
     Route: 048
     Dates: start: 20130124, end: 20130227
  9. PREDONINE [Concomitant]
     Indication: RHEUMATOID ARTHRITIS
     Route: 048
     Dates: start: 20120906, end: 20130623
  10. MOHRUS TAPEL [Concomitant]
     Indication: RHEUMATOID ARTHRITIS
     Route: 062
  11. PLAVIX [Concomitant]
     Route: 048
  12. EXFORGE [Concomitant]
     Route: 048
  13. CONIEL [Concomitant]
     Route: 048
  14. TAKEPRON [Concomitant]
     Route: 048
  15. MYONAL [Concomitant]
     Route: 048
  16. FOLIAMIN [Concomitant]
     Indication: PROPHYLAXIS
     Route: 065
  17. ISCOTIN [Concomitant]
     Indication: PROPHYLAXIS
     Route: 065

REACTIONS (1)
  - Polymyalgia rheumatica [Recovering/Resolving]
